FAERS Safety Report 17129904 (Version 1)
Quarter: 2019Q4

REPORT INFORMATION
  Report Type: Spontaneous
  Country: US (occurrence: US)
  Receive Date: 20191209
  Receipt Date: 20191209
  Transmission Date: 20200122
  Serious: Yes (Hospitalization, Other)
  Sender: FDA-Public Use
  Company Number: US-SA-2019SA337170

PATIENT
  Age: 82 Year
  Sex: Male
  Weight: 92.53 kg

DRUGS (18)
  1. YOHIMBINE HYDROCHLORIDE [Suspect]
     Active Substance: YOHIMBINE HYDROCHLORIDE
     Indication: SUPPLEMENTATION THERAPY
     Dosage: 2 DF, QD
     Route: 048
     Dates: start: 2009, end: 20191029
  2. LOSARTAN. [Concomitant]
     Active Substance: LOSARTAN
     Dosage: UNK UNK, UNK
     Route: 065
  3. DILTIAZEM. [Concomitant]
     Active Substance: DILTIAZEM
     Dosage: UNK UNK, UNK
     Route: 065
  4. VITAMIN D3 [Concomitant]
     Active Substance: CHOLECALCIFEROL
     Dosage: UNK UNK, QD
     Route: 065
  5. GINKGO BILOBA [Concomitant]
     Active Substance: GINKGO
     Dosage: UNK UNK, QD
     Route: 065
  6. MUIRA PUAMA [DIETARY SUPPLEMENT\HERBALS] [Suspect]
     Active Substance: DIETARY SUPPLEMENT\HERBALS
     Indication: MEDICAL DIET
     Dosage: 1 DF, QD
     Route: 048
     Dates: start: 2009, end: 20191106
  7. CARBIDOPA AND LEVODOPA [Concomitant]
     Active Substance: CARBIDOPA\LEVODOPA
     Dosage: UNK UNK, UNK
     Route: 065
  8. APPLE CIDER VINEGAR [Concomitant]
     Active Substance: APPLE CIDER VINEGAR
     Dosage: UNK UNK, QD
     Route: 065
  9. ALOE VERA [Suspect]
     Active Substance: ALOE VERA LEAF
     Indication: MEDICAL DIET
     Dosage: 1 DF, BID
     Route: 048
     Dates: start: 2009, end: 20191106
  10. CLOPIDOGREL BISULFATE. [Suspect]
     Active Substance: CLOPIDOGREL BISULFATE
     Indication: BLOOD FIBRINOGEN
     Dosage: UNK UNK, UNK
     Route: 048
  11. GABAPENTIN. [Concomitant]
     Active Substance: GABAPENTIN
     Dosage: UNK UNK, UNK
     Route: 065
  12. PRAVASTATIN. [Concomitant]
     Active Substance: PRAVASTATIN
     Dosage: UNK UNK, UNK
     Route: 065
  13. DULOXETINE. [Concomitant]
     Active Substance: DULOXETINE
     Dosage: UNK UNK, UNK
     Route: 065
  14. VITAMIN B12 [Concomitant]
     Active Substance: CYANOCOBALAMIN
     Dosage: 1 DF, QD
     Route: 065
  15. GLUCOSAMINE CHONDROITIN [CHONDROITIN SULFATE;GLUCOSAMINE] [Concomitant]
     Dosage: 2 DF, QD
     Route: 065
  16. FISH OIL [Concomitant]
     Active Substance: FISH OIL
     Dosage: 3 DF, QD
     Route: 065
  17. MAGNESIUM [Concomitant]
     Active Substance: MAGNESIUM
     Dosage: UNK UNK, QD
     Route: 065
  18. COMPLETE B [Concomitant]
     Dosage: 2 DF, QD
     Route: 065

REACTIONS (1)
  - Gastrointestinal haemorrhage [Recovered/Resolved]

NARRATIVE: CASE EVENT DATE: 20191029
